FAERS Safety Report 4601832-7 (Version None)
Quarter: 2005Q1

REPORT INFORMATION
  Report Type: 
  Country: None (occurrence: None)
  Receive Date: 20050131
  Receipt Date: 20041014
  Transmission Date: 20050727
  Serious: No
  Sender: FDA-Public Use
  Company Number: 200417895US

PATIENT
  Age: 31 Year
  Sex: Female

DRUGS (18)
  1. KETEK [Suspect]
     Indication: SINUSITIS
     Dosage: 800 MG QAM PO
     Route: 048
  2. KETEK [Suspect]
     Indication: SINUSITIS
     Dosage: 800 MG HS PO
     Route: 048
  3. VEAPAMIL [Concomitant]
  4. BUDESONIDE (RHINOCORT) [Concomitant]
  5. FLUDROCORTISONE ACETATE (FLORINEF) [Concomitant]
  6. PREVACID [Concomitant]
  7. FLUTICASONE PROPIONATE [Concomitant]
  8. SALMETEROL XINAFOATE (ADVAIR) [Concomitant]
  9. ALBUTEROL [Concomitant]
  10. MONTELUKAST SODIUM [Concomitant]
  11. ASCORBIC ACID [Concomitant]
  12. BIOTIN [Concomitant]
  13. TOCOPHEROL CONCENTRATE CAP [Concomitant]
  14. NICOTINIC ACID [Concomitant]
  15. RETINOL [Concomitant]
  16. VITAMIN D [Concomitant]
  17. MINERALS NOS [Concomitant]
  18. VITAMIN B NOS (PRENATAL VITAMINS) [Concomitant]

REACTIONS (3)
  - DIPLOPIA [None]
  - VERTIGO [None]
  - VISION BLURRED [None]
